FAERS Safety Report 5415510-8 (Version None)
Quarter: 2007Q3

REPORT INFORMATION
  Report Type: 
  Country: None (occurrence: None)
  Receive Date: 20070813
  Receipt Date: 20070728
  Transmission Date: 20080115
  Serious: Yes (Hospitalization)
  Sender: FDA-Public Use
  Company Number: 2007BM000090

PATIENT
  Age: 29 Year
  Sex: Male
  Weight: 55 kg

DRUGS (3)
  1. PREDNISOLONE [Suspect]
     Indication: HENOCH-SCHONLEIN PURPURA
     Dosage: 40 MG;QD;IV
     Route: 042
  2. METHYLPREDNISOLONE [Suspect]
     Indication: HENOCH-SCHONLEIN PURPURA
     Dosage: 40 MG;QD
  3. ORAPRED [Suspect]

REACTIONS (4)
  - ENDOCARDITIS [None]
  - PNEUMONIA [None]
  - SEPTIC SHOCK [None]
  - STREPTOCOCCAL INFECTION [None]
